FAERS Safety Report 8932660 (Version 2)
Quarter: 2013Q1

REPORT INFORMATION
  Report Type: Report from Study
  Country: US (occurrence: US)
  Receive Date: 20121129
  Receipt Date: 20130102
  Transmission Date: 20140127
  Serious: Yes (Other)
  Sender: FDA-Public Use
  Company Number: US-JNJFOC-20121110489

PATIENT
  Age: 86 Year
  Sex: Male
  Weight: 71.67 kg

DRUGS (3)
  1. XARELTO [Suspect]
     Indication: DEEP VEIN THROMBOSIS
     Route: 048
     Dates: start: 20121108
  2. VITAMIN D [Concomitant]
     Route: 048
  3. CENTRUM SILVER [Concomitant]

REACTIONS (2)
  - Haematochezia [Recovered/Resolved]
  - Constipation [Recovered/Resolved]
